FAERS Safety Report 4702427-7 (Version None)
Quarter: 2005Q2

REPORT INFORMATION
  Report Type: 
  Country: None (occurrence: None)
  Receive Date: 20050629
  Receipt Date: 20050621
  Transmission Date: 20051028
  Serious: Yes (Hospitalization)
  Sender: FDA-Public Use
  Company Number: JP-BOEHRINGER INGELHEIM PHARMACEUTICALS, INC.-2005-BP-10547NB

PATIENT
  Sex: Male

DRUGS (2)
  1. SPIRIVA [Suspect]
     Indication: EMPHYSEMA
     Route: 055
     Dates: start: 20041221, end: 20050119
  2. MUCOSOLVAN [Concomitant]
     Indication: EMPHYSEMA
     Route: 048
     Dates: start: 20050412, end: 20050619

REACTIONS (1)
  - ILEUS PARALYTIC [None]
